FAERS Safety Report 7875490-2 (Version None)
Quarter: 2011Q4

REPORT INFORMATION
  Report Type: 
  Country: None (occurrence: None)
  Receive Date: 20111031
  Receipt Date: 20111024
  Transmission Date: 20120403
  Serious: Yes (Life-Threatening, Hospitalization)
  Sender: FDA-Public Use
  Company Number: PHHY2010US35276

PATIENT
  Sex: Female

DRUGS (3)
  1. TEKTURNA [Suspect]
     Indication: HYPERTENSION
     Dosage: 150 MG, UNK
     Dates: start: 20100409, end: 20100501
  2. VALTURNA [Suspect]
     Indication: HYPERTENSION
     Dosage: 1 DF (150/160 MG), UNK
     Dates: start: 20100423
  3. DIOVAN [Suspect]
     Indication: HYPERTENSION
     Dosage: 160 MG, UNK

REACTIONS (4)
  - RASH [None]
  - MALAISE [None]
  - STEVENS-JOHNSON SYNDROME [None]
  - HYPERSENSITIVITY [None]
